FAERS Safety Report 4442561-2 (Version None)
Quarter: 2004Q3

REPORT INFORMATION
  Report Type: 
  Country: None (occurrence: None)
  Receive Date: 20040907
  Receipt Date: 20040831
  Transmission Date: 20050211
  Serious: Yes (Disabling)
  Sender: FDA-Public Use
  Company Number: US-MERCK-0409USA00013

PATIENT
  Age: 39 Year
  Sex: Female

DRUGS (2)
  1. PAXIL [Concomitant]
     Route: 065
  2. VIOXX [Suspect]
     Indication: ANALGESIC EFFECT
     Route: 048

REACTIONS (2)
  - AMENORRHOEA [None]
  - HORMONE LEVEL ABNORMAL [None]
